FAERS Safety Report 12652643 (Version 1)
Quarter: 2016Q3

REPORT INFORMATION
  Report Type: Spontaneous
  Country: GB (occurrence: GB)
  Receive Date: 20160815
  Receipt Date: 20160815
  Transmission Date: 20161109
  Serious: Yes (Hospitalization)
  Sender: FDA-Public Use
  Company Number: GB-SA-2016SA145954

PATIENT
  Age: 73 Year
  Sex: Male

DRUGS (5)
  1. INDAPAMIDE. [Suspect]
     Active Substance: INDAPAMIDE
     Route: 065
     Dates: end: 20160707
  2. LEVOTHYROXINE. [Concomitant]
     Active Substance: LEVOTHYROXINE
     Dosage: 125MCG /150MCG ALTERNATIVE DAYS
  3. NIFEDIPINE. [Concomitant]
     Active Substance: NIFEDIPINE
  4. MOXONIDINE [Concomitant]
     Active Substance: MOXONIDINE
     Dosage: AT NIGHT
  5. IRBESARTAN. [Concomitant]
     Active Substance: IRBESARTAN

REACTIONS (2)
  - Acute kidney injury [Unknown]
  - Hyponatraemia [Recovering/Resolving]

NARRATIVE: CASE EVENT DATE: 20160707
